FAERS Safety Report 7073440-2 (Version None)
Quarter: 2010Q4

REPORT INFORMATION
  Report Type: 
  Country: None (occurrence: None)
  Receive Date: 20101029
  Receipt Date: 20100607
  Transmission Date: 20110411
  Serious: No
  Sender: FDA-Public Use
  Company Number: A0865972A

PATIENT

DRUGS (1)
  1. ADVAIR DISKUS 100/50 [Suspect]
     Route: 055

REACTIONS (5)
  - BIOPSY [None]
  - DYSPHONIA [None]
  - LARYNGEAL INFLAMMATION [None]
  - LARYNGEAL ULCERATION [None]
  - LARYNGOSCOPY [None]
